FAERS Safety Report 6538532-2 (Version None)
Quarter: 2010Q1

REPORT INFORMATION
  Report Type: 
  Country: None (occurrence: None)
  Receive Date: 20100113
  Receipt Date: 20100113
  Transmission Date: 20100710
  Serious: Yes (Hospitalization)
  Sender: FDA-Public Use
  Company Number: None

PATIENT
  Age: 82 Year
  Sex: Male
  Weight: 81.1 kg

DRUGS (1)
  1. INDOMETHACIN [Suspect]
     Indication: GOUT
     Dosage: 25 MG TID PO
     Route: 048
     Dates: start: 20090729, end: 20090806

REACTIONS (2)
  - GASTRIC HAEMORRHAGE [None]
  - RENAL IMPAIRMENT [None]
